FAERS Safety Report 19374961 (Version 1)
Quarter: 2021Q2

REPORT INFORMATION
  Report Type: Spontaneous
  Country: DE (occurrence: DE)
  Receive Date: 20210604
  Receipt Date: 20210604
  Transmission Date: 20210717
  Serious: Yes (Other)
  Sender: FDA-Public Use
  Company Number: NVSC2021DE121270

PATIENT
  Age: 73 Year
  Sex: Male

DRUGS (7)
  1. L?THYROXIN HENNING [Concomitant]
     Active Substance: LEVOTHYROXINE SODIUM
     Indication: PRODUCT USED FOR UNKNOWN INDICATION
     Dosage: UNK
     Route: 065
  2. VALSARTAN ? 1 A PHARMA PLUS 80 MG/12,5 MG FILMTABLETTEN [Suspect]
     Active Substance: HYDROCHLOROTHIAZIDE\VALSARTAN
     Indication: BUNDLE BRANCH BLOCK LEFT
     Dosage: 0.5 DF (1/2 TABLET)
     Route: 065
  3. NITROLINGUAL [Concomitant]
     Active Substance: NITROGLYCERIN
     Indication: PRODUCT USED FOR UNKNOWN INDICATION
     Dosage: UNK (SPRAY)
     Route: 065
  4. TORASEMIDE [Concomitant]
     Active Substance: TORSEMIDE
     Indication: PRODUCT USED FOR UNKNOWN INDICATION
     Dosage: UNK
     Route: 065
  5. NOVOPULMON [Concomitant]
     Active Substance: BUDESONIDE
     Indication: PRODUCT USED FOR UNKNOWN INDICATION
     Dosage: UNK
     Route: 065
  6. VALSARTAN ? 1 A PHARMA PLUS 80 MG/12,5 MG FILMTABLETTEN [Suspect]
     Active Substance: HYDROCHLOROTHIAZIDE\VALSARTAN
     Dosage: 1 DF, QD
     Route: 065
  7. AAS PROTECT [Concomitant]
     Active Substance: ASPIRIN
     Indication: PRODUCT USED FOR UNKNOWN INDICATION
     Dosage: UNK (100)
     Route: 065

REACTIONS (6)
  - Erectile dysfunction [Not Recovered/Not Resolved]
  - Expired product administered [Unknown]
  - Constipation [Not Recovered/Not Resolved]
  - Wrong technique in product usage process [Unknown]
  - Product use in unapproved indication [Unknown]
  - Sleep disorder [Not Recovered/Not Resolved]
